FAERS Safety Report 9770736 (Version 3)
Quarter: 2013Q4

REPORT INFORMATION
  Report Type: Spontaneous
  Country: US (occurrence: US)
  Receive Date: 20131218
  Receipt Date: 20131220
  Transmission Date: 20140711
  Serious: Yes (Hospitalization)
  Sender: FDA-Public Use
  Company Number: US-BAXTER-2013BAX046918

PATIENT
  Age: 31 Year
  Sex: Female

DRUGS (7)
  1. DIANEAL LOW CALCIUM [Suspect]
     Indication: PERITONEAL DIALYSIS
     Route: 033
     Dates: start: 2010
  2. DIANEAL LOW CALCIUM [Suspect]
     Indication: PERITONEAL DIALYSIS
     Route: 033
     Dates: start: 2010
  3. EXTRANEAL [Suspect]
     Indication: PERITONEAL DIALYSIS
     Route: 033
     Dates: start: 2010
  4. HYDRALAZINE [Concomitant]
     Indication: HYPERTENSION
     Route: 048
  5. COREG [Concomitant]
     Indication: HYPERTENSION
     Route: 048
  6. LISINOPRIL [Concomitant]
     Indication: HYPERTENSION
     Route: 048
  7. LISINOPRIL [Concomitant]
     Indication: HYPERTENSION
     Route: 048

REACTIONS (2)
  - Impaired gastric emptying [Recovering/Resolving]
  - Hypertension [Recovering/Resolving]
